FAERS Safety Report 9192260 (Version 1)
Quarter: 2013Q1

REPORT INFORMATION
  Report Type: Spontaneous
  Country: US (occurrence: US)
  Receive Date: 20130327
  Receipt Date: 20130327
  Transmission Date: 20140127
  Serious: Yes (Other)
  Sender: FDA-Public Use
  Company Number: US-AMGEN-USASP2013019887

PATIENT
  Age: 79 Year
  Sex: Female

DRUGS (3)
  1. PROLIA [Suspect]
     Indication: OSTEOPENIA
     Dosage: UNK
     Dates: start: 20120928
  2. CALCIUM [Concomitant]
  3. VITAMIN D3 [Concomitant]

REACTIONS (2)
  - Renal failure chronic [Unknown]
  - Tooth disorder [Unknown]
